FAERS Safety Report 7535712-4 (Version None)
Quarter: 2011Q2

REPORT INFORMATION
  Report Type: 
  Country: None (occurrence: None)
  Receive Date: 20110608
  Receipt Date: 20110608
  Transmission Date: 20111010
  Serious: No
  Sender: FDA-Public Use
  Company Number: None

PATIENT
  Sex: Female
  Weight: 118.9331 kg

DRUGS (1)
  1. ZETIA [Suspect]

REACTIONS (1)
  - MUSCULAR WEAKNESS [None]
